FAERS Safety Report 25085896 (Version 1)
Quarter: 2025Q1

REPORT INFORMATION
  Report Type: Spontaneous
  Country: US (occurrence: None)
  Receive Date: 20250316
  Receipt Date: 20250316
  Transmission Date: 20250409
  Serious: Yes (Disabling)
  Sender: FDA-CTU
  Company Number: None

PATIENT
  Age: 58 Year
  Sex: Female
  Weight: 55.35 kg

DRUGS (13)
  1. FAMOTIDINE [Suspect]
     Active Substance: FAMOTIDINE
     Indication: Gastrooesophageal reflux disease
     Dosage: 1 TABLET TWICE A DAY ORAL ?
     Route: 048
     Dates: start: 20250203
  2. FAMOTIDINE [Suspect]
     Active Substance: FAMOTIDINE
     Indication: Gastritis
  3. SUCRALFATE [Suspect]
     Active Substance: SUCRALFATE
  4. SERTRALINE HYDROCHLORIDE [Concomitant]
     Active Substance: SERTRALINE HYDROCHLORIDE
  5. LISINOPRIL [Concomitant]
     Active Substance: LISINOPRIL
  6. ATORVASTATIN [Concomitant]
     Active Substance: ATORVASTATIN
  7. HYDROCHLOROTHIAZIDE [Concomitant]
     Active Substance: HYDROCHLOROTHIAZIDE
  8. LATANOPROST [Concomitant]
     Active Substance: LATANOPROST
  9. GABAPENTIN [Concomitant]
     Active Substance: GABAPENTIN
  10. IRON [Concomitant]
     Active Substance: IRON
  11. ASPIRIN [Concomitant]
     Active Substance: ASPIRIN
  12. CALCIUM [Concomitant]
     Active Substance: CALCIUM
  13. VITAMINS [Concomitant]
     Active Substance: VITAMINS

REACTIONS (5)
  - Abdominal pain upper [None]
  - Back pain [None]
  - Sleep disorder [None]
  - Dysgeusia [None]
  - Feeling abnormal [None]

NARRATIVE: CASE EVENT DATE: 20250314
